FAERS Safety Report 16174728 (Version 2)
Quarter: 2019Q2

REPORT INFORMATION
  Report Type: Spontaneous
  Country: JP (occurrence: JP)
  Receive Date: 20190409
  Receipt Date: 20190606
  Transmission Date: 20190711
  Serious: Yes (Hospitalization, Other)
  Sender: FDA-Public Use
  Company Number: JP-PFIZER INC-2019142777

PATIENT
  Age: 77 Year
  Sex: Male
  Weight: 51 kg

DRUGS (6)
  1. LYRICA [Suspect]
     Active Substance: PREGABALIN
     Indication: HYPOAESTHESIA
  2. LYRICA [Suspect]
     Active Substance: PREGABALIN
     Indication: PAIN IN EXTREMITY
     Dosage: 150 MG, DAILY (75MG TWICE DAILY)
     Route: 048
     Dates: start: 20190330, end: 20190331
  3. HOCHUEKKITO [ANGELICA ACUTILOBA ROOT;ASTRAGALUS SPP. ROOT;ATRACTYLODES [Concomitant]
     Dosage: 2.5 G, 2X/DAY
     Route: 048
     Dates: start: 20181026
  4. GONAX [Concomitant]
     Active Substance: DEGARELIX
     Dosage: 80 MG, UNK
     Route: 058
     Dates: start: 20180509
  5. MIRCERA [Concomitant]
     Active Substance: METHOXY POLYETHYLENE GLYCOL-EPOETIN BETA
     Dosage: 25 UG, UNK
     Route: 042
     Dates: start: 20181026
  6. BICALUTAMIDE. [Concomitant]
     Active Substance: BICALUTAMIDE
     Dosage: 80 MG, 1X/DAY
     Route: 048
     Dates: start: 20180411

REACTIONS (6)
  - Loss of consciousness [Recovered/Resolved]
  - Road traffic accident [Unknown]
  - Skin laceration [Unknown]
  - Somnolence [Recovered/Resolved]
  - Facial bones fracture [Recovering/Resolving]
  - Radius fracture [Not Recovered/Not Resolved]

NARRATIVE: CASE EVENT DATE: 20190330
